FAERS Safety Report 8175895-9 (Version None)
Quarter: 2012Q1

REPORT INFORMATION
  Report Type: 
  Country: None (occurrence: None)
  Receive Date: 20120301
  Receipt Date: 20120223
  Transmission Date: 20120608
  Serious: Yes (Death)
  Sender: FDA-Public Use
  Company Number: GB-UCBSA-042818

PATIENT
  Age: 71 Year
  Sex: Female
  Weight: 45 kg

DRUGS (3)
  1. PREDNISOLONE [Concomitant]
  2. CERTOLIZUMAB [Suspect]
     Indication: RHEUMATOID ARTHRITIS
     Route: 058
     Dates: start: 20110616
  3. HYDROXYCHLOROQUINE SULFATE [Concomitant]

REACTIONS (3)
  - SEPSIS [None]
  - CELLULITIS [None]
  - PYODERMA GANGRENOSUM [None]
